FAERS Safety Report 21661318 (Version 16)
Quarter: 2023Q4

REPORT INFORMATION
  Report Type: Other
  Country: CA (occurrence: None)
  Receive Date: 20221130
  Receipt Date: 20231227
  Transmission Date: 20240110
  Serious: Yes (Other)
  Sender: FDA-Public Use
  Company Number: CA-ROCHE-3204535

PATIENT
  Age: 43 Year
  Sex: Female

DRUGS (8)
  1. OCREVUS [Suspect]
     Active Substance: OCRELIZUMAB
     Indication: Relapsing-remitting multiple sclerosis
     Dosage: 300 MG AT DAY 0 AND 14, THEN 600 MG EVERY 6 MONTH
     Route: 042
     Dates: start: 20220513
  2. LITHIUM [Suspect]
     Active Substance: LITHIUM
     Indication: Product used for unknown indication
     Route: 065
  3. CLONAZEPAM [Concomitant]
     Active Substance: CLONAZEPAM
  4. SEROQUEL [Concomitant]
     Active Substance: QUETIAPINE FUMARATE
  5. PROPRANOLOL [Concomitant]
     Active Substance: PROPRANOLOL HYDROCHLORIDE
  6. RABEPRAZOLE [Concomitant]
     Active Substance: RABEPRAZOLE
  7. OMNARIS [Concomitant]
     Active Substance: CICLESONIDE
  8. AVIANE [Concomitant]
     Active Substance: ETHINYL ESTRADIOL\LEVONORGESTREL

REACTIONS (33)
  - Bipolar disorder [Unknown]
  - Hidradenitis [Recovering/Resolving]
  - Multiple sclerosis [Not Recovered/Not Resolved]
  - Sleep apnoea syndrome [Unknown]
  - Reflux laryngitis [Unknown]
  - Dysphagia [Unknown]
  - Tremor [Unknown]
  - Folliculitis [Recovered/Resolved]
  - Fungal infection [Recovering/Resolving]
  - Nasal oedema [Unknown]
  - Dry mouth [Unknown]
  - Micturition urgency [Unknown]
  - Aphasia [Unknown]
  - Brain fog [Not Recovered/Not Resolved]
  - Fatigue [Not Recovered/Not Resolved]
  - Cognitive disorder [Not Recovered/Not Resolved]
  - Disorientation [Not Recovered/Not Resolved]
  - Back pain [Unknown]
  - Cyst [Unknown]
  - Muscle spasms [Not Recovered/Not Resolved]
  - Haemoglobin decreased [Unknown]
  - Blood creatinine increased [Unknown]
  - Heavy menstrual bleeding [Unknown]
  - Memory impairment [Unknown]
  - Urinary incontinence [Unknown]
  - Renal disorder [Not Recovered/Not Resolved]
  - Dehydration [Unknown]
  - Blood iron decreased [Unknown]
  - Glomerular filtration rate increased [Unknown]
  - Dizziness [Unknown]
  - Spinal disorder [Unknown]
  - Arthralgia [Unknown]
  - Uterine disorder [Unknown]

NARRATIVE: CASE EVENT DATE: 20221231
